FAERS Safety Report 19570932 (Version 1)
Quarter: 2021Q3

REPORT INFORMATION
  Report Type: Report from Study
  Country: ES (occurrence: ES)
  Receive Date: 20210715
  Receipt Date: 20210715
  Transmission Date: 20211014
  Serious: Yes (Death, Hospitalization)
  Sender: FDA-Public Use
  Company Number: ES-TEVA-2021-ES-1931315

PATIENT
  Age: 52 Year
  Sex: Female

DRUGS (3)
  1. GLATIRAMER?ACETATE [Suspect]
     Active Substance: GLATIRAMER ACETATE
     Indication: RELAPSING MULTIPLE SCLEROSIS
     Dosage: BETWEEN 2012 AND 2014
     Route: 030
  2. DIMETHYL?FUMARATE [Suspect]
     Active Substance: DIMETHYL FUMARATE
     Indication: RELAPSING MULTIPLE SCLEROSIS
     Route: 065
     Dates: start: 201410, end: 201603
  3. INTERFERON?BETA?1A [Suspect]
     Active Substance: INTERFERON BETA-1A
     Indication: RELAPSING MULTIPLE SCLEROSIS
     Dosage: BETWEEN 2012 AND 2014
     Route: 030

REACTIONS (3)
  - Metastases to liver [Fatal]
  - Malignant neoplasm progression [Fatal]
  - Uterine leiomyosarcoma [Fatal]

NARRATIVE: CASE EVENT DATE: 201603
